FAERS Safety Report 6866758-7 (Version None)
Quarter: 2010Q3

REPORT INFORMATION
  Report Type: 
  Country: None (occurrence: None)
  Receive Date: 20100722
  Receipt Date: 20100712
  Transmission Date: 20110219
  Serious: Yes (Hospitalization)
  Sender: FDA-Public Use
  Company Number: US-AMGEN-QUU415318

PATIENT
  Sex: Female

DRUGS (3)
  1. ENBREL [Suspect]
     Indication: PSORIATIC ARTHROPATHY
     Route: 058
     Dates: start: 20060217, end: 20100616
  2. ENBREL [Suspect]
     Indication: PSORIASIS
  3. HUMIRA [Concomitant]

REACTIONS (13)
  - CHEST PAIN [None]
  - CHOLECYSTITIS INFECTIVE [None]
  - DYSPNOEA [None]
  - FLANK PAIN [None]
  - HYPERSENSITIVITY [None]
  - LIVER FUNCTION TEST ABNORMAL [None]
  - NAUSEA [None]
  - PARAESTHESIA [None]
  - PSORIASIS [None]
  - SINUSITIS [None]
  - THERAPEUTIC RESPONSE DECREASED [None]
  - UPPER RESPIRATORY TRACT CONGESTION [None]
  - UPPER RESPIRATORY TRACT INFECTION [None]
